FAERS Safety Report 9853847 (Version 1)
Quarter: 2014Q1

REPORT INFORMATION
  Report Type: Spontaneous
  Country: US (occurrence: US)
  Receive Date: 20140129
  Receipt Date: 20140129
  Transmission Date: 20141002
  Serious: Yes (Hospitalization, Other)
  Sender: FDA-Public Use
  Company Number: US-ENDO PHARMACEUTICALS INC.-PHEB20140002

PATIENT
  Age: 55 Year
  Sex: Female

DRUGS (3)
  1. PHENOBARBITAL [Suspect]
     Indication: CONVULSION
     Route: 048
     Dates: start: 2012
  2. DEPAKOTE [Suspect]
     Indication: CONVULSION
     Dosage: UNKNOWN
     Route: 048
     Dates: start: 2013, end: 2013
  3. PHENOBARBITAL [Concomitant]
     Indication: CONVULSION
     Dosage: UNKNOWN
     Route: 048
     Dates: end: 2012

REACTIONS (6)
  - Fall [Recovered/Resolved]
  - Toxicity to various agents [Unknown]
  - Hypoaesthesia [Unknown]
  - Diarrhoea [Recovered/Resolved]
  - Vitamin B complex deficiency [Not Recovered/Not Resolved]
  - Inhibitory drug interaction [Unknown]
